FAERS Safety Report 9098702 (Version 1)
Quarter: 2013Q1

REPORT INFORMATION
  Report Type: Spontaneous
  Country: FR (occurrence: FR)
  Receive Date: 20130213
  Receipt Date: 20130213
  Transmission Date: 20140127
  Serious: Yes (Death, Hospitalization)
  Sender: FDA-Public Use
  Company Number: FR-PFIZER INC-2013052176

PATIENT
  Age: 45 Year
  Sex: Female

DRUGS (2)
  1. ADEPAL [Suspect]
     Indication: CONTRACEPTION
     Dosage: ETHINYLESTRADIOL 30-40 ?G/ LEVONORGESTREL 150-200 ?G
     Route: 048
  2. SEROPRAM [Concomitant]
     Indication: DEPRESSION

REACTIONS (1)
  - Ischaemic stroke [Fatal]
